FAERS Safety Report 17401974 (Version 1)
Quarter: 2020Q1

REPORT INFORMATION
  Report Type: Spontaneous
  Country: RO (occurrence: RO)
  Receive Date: 20200211
  Receipt Date: 20200211
  Transmission Date: 20200409
  Serious: Yes (Other)
  Sender: FDA-Public Use
  Company Number: RO-AMGEN-ROUSP2020020751

PATIENT
  Age: 61 Year
  Sex: Male

DRUGS (7)
  1. FUROSEMIDE. [Concomitant]
     Active Substance: FUROSEMIDE
     Indication: HYPERTENSIVE HEART DISEASE
     Dosage: 40 MILLIGRAM, QD
  2. NEBILET [Concomitant]
     Active Substance: NEBIVOLOL
     Indication: HYPERTENSIVE HEART DISEASE
     Dosage: 5 MILLIGRAM, QD
  3. IRON COMPLEX [IRON] [Concomitant]
     Active Substance: IRON
     Indication: NEPHROGENIC ANAEMIA
     Dosage: 100 MILLIGRAM, QD
  4. ALLOPURINOL. [Concomitant]
     Active Substance: ALLOPURINOL
     Indication: HYPERURICAEMIA
     Dosage: 300 MILLIGRAM, 1/2 CP QD
  5. ARANESP [Suspect]
     Active Substance: DARBEPOETIN ALFA
     Indication: NEPHROGENIC ANAEMIA
     Dosage: 20 MICROGRAM, QMO
     Route: 065
  6. ASPENTER [Concomitant]
     Active Substance: ASPIRIN
     Indication: HYPERTENSIVE HEART DISEASE
     Dosage: UNK
  7. FOLIC ACID. [Concomitant]
     Active Substance: FOLIC ACID
     Indication: NEPHROGENIC ANAEMIA
     Dosage: 5 MILLIGRAM, 2CP/QD

REACTIONS (5)
  - Portal hypertension [Recovering/Resolving]
  - Umbilical hernia [Unknown]
  - Portal vein thrombosis [Recovering/Resolving]
  - Ascites [Recovering/Resolving]
  - Splenomegaly [Unknown]
